FAERS Safety Report 23603337 (Version 1)
Quarter: 2024Q1

REPORT INFORMATION
  Report Type: Spontaneous
  Country: US (occurrence: US)
  Receive Date: 20240307
  Receipt Date: 20240307
  Transmission Date: 20240410
  Serious: No
  Sender: FDA-Public Use
  Company Number: US-PADAGIS-2024PAD00300

PATIENT

DRUGS (1)
  1. ESTRADIOL VAGINAL [Suspect]
     Active Substance: ESTRADIOL
     Indication: Atrophic vulvovaginitis
     Dosage: UNK
     Route: 065
     Dates: start: 202402

REACTIONS (6)
  - Application site dryness [Unknown]
  - Application site pain [Unknown]
  - Application site pruritus [Unknown]
  - Application site discomfort [Unknown]
  - Product use issue [Unknown]
  - Product container seal issue [Unknown]
